FAERS Safety Report 4830189-1 (Version None)
Quarter: 2005Q4

REPORT INFORMATION
  Report Type: 
  Country: None (occurrence: None)
  Receive Date: 20051117
  Receipt Date: 20051109
  Transmission Date: 20060501
  Serious: Yes (Hospitalization)
  Sender: FDA-Public Use
  Company Number: US-MERCK-0511USA01597

PATIENT
  Age: 59 Year
  Sex: Male
  Weight: 95 kg

DRUGS (4)
  1. VIOXX [Suspect]
     Indication: BACK PAIN
     Route: 048
     Dates: start: 20020122, end: 20020529
  2. LORAZEPAM [Concomitant]
     Route: 065
  3. WELLBUTRIN SR [Concomitant]
     Route: 065
  4. HEMORRHOIDAL HC [Concomitant]
     Route: 065

REACTIONS (4)
  - ADVERSE EVENT [None]
  - MYOCARDIAL INFARCTION [None]
  - NASAL DISORDER [None]
  - NEPHROLITHIASIS [None]
